FAERS Safety Report 8263663-9 (Version None)
Quarter: 2012Q2

REPORT INFORMATION
  Report Type: 
  Country: None (occurrence: None)
  Receive Date: 20120405
  Receipt Date: 20120322
  Transmission Date: 20120825
  Serious: Yes (Hospitalization)
  Sender: FDA-Public Use
  Company Number: AT-ROCHE-1018165

PATIENT
  Sex: Female
  Weight: 69 kg

DRUGS (5)
  1. LEVOTHYROXINE SODIUM [Concomitant]
     Dates: start: 20100101
  2. MABTHERA [Suspect]
     Indication: CHRONIC LYMPHOCYTIC LEUKAEMIA
     Dosage: DATE OF LAST DOSE PRIOR TO SAE 16 NOVEMBER 2011, PERMANENTLY DISCONTINUED
     Route: 042
     Dates: start: 20110531, end: 20120116
  3. VALTREX [Concomitant]
     Dates: start: 20100902
  4. PLAVIX [Concomitant]
     Dosage: BEFORE STUDY ENTRY
  5. ATORVASTATIN CALCIUM [Concomitant]
     Dosage: BEFORE STUDY ENTRY

REACTIONS (3)
  - OPTIC ATROPHY [None]
  - OPTIC NEURITIS [None]
  - AMAUROSIS [None]
